FAERS Safety Report 8375035-7 (Version None)
Quarter: 2012Q2

REPORT INFORMATION
  Report Type: 
  Country: None (occurrence: None)
  Receive Date: 20120521
  Receipt Date: 20120516
  Transmission Date: 20120825
  Serious: Yes (Hospitalization)
  Sender: FDA-Public Use
  Company Number: US-ABBOTT-12P-163-0925540-00

PATIENT
  Sex: Female
  Weight: 59.5 kg

DRUGS (37)
  1. DIGESTIVE ENZYME [Concomitant]
     Indication: ENZYME SUPPLEMENTATION
     Route: 048
     Dates: start: 20090722, end: 20090821
  2. INFLUENZA VACCINE [Concomitant]
     Indication: ANTIVIRAL PROPHYLAXIS
     Dosage: 1 SHOT, ONCE TOTAL
     Route: 050
     Dates: start: 20090915, end: 20090930
  3. PREDNISONE [Concomitant]
     Route: 048
     Dates: start: 20100308, end: 20100314
  4. PREDNISONE [Concomitant]
     Route: 048
     Dates: start: 20100315, end: 20100401
  5. TERBUTALINE [Concomitant]
  6. CALCIUM [Concomitant]
     Indication: PRODUCT USED FOR UNKNOWN INDICATION
     Route: 048
     Dates: start: 20090722, end: 20090821
  7. L-GLUTAMINE [Concomitant]
     Indication: PRODUCT USED FOR UNKNOWN INDICATION
     Dosage: 4 GRAMS, 3.5 TIMES A WEEK
     Route: 048
     Dates: start: 20090929, end: 20091115
  8. BENADRYL [Concomitant]
     Indication: SLEEP DISORDER THERAPY
     Route: 048
     Dates: start: 20090821, end: 20100322
  9. PREDNISONE [Concomitant]
     Indication: CROHN'S DISEASE
     Route: 048
     Dates: start: 20091120, end: 20100307
  10. H1N1 2009 INFLUENZA VACCINE [Concomitant]
     Indication: PROPHYLAXIS
     Dosage: 1 SHOT ONCE TOTAL
     Route: 050
     Dates: start: 20091015, end: 20091031
  11. TERBUTALINE [Concomitant]
     Indication: PROPHYLAXIS
  12. FLAXSEED OIL [Concomitant]
     Indication: PRODUCT USED FOR UNKNOWN INDICATION
     Route: 048
     Dates: start: 20090722, end: 20090821
  13. ALLEGRA [Concomitant]
     Indication: HYPERSENSITIVITY
     Route: 048
     Dates: start: 20090722, end: 20090821
  14. PROCARDIA [Concomitant]
     Indication: PREMATURE LABOUR
     Route: 048
     Dates: start: 20100308, end: 20100401
  15. PROCARDIA [Concomitant]
  16. MULTI-VITAMINS [Concomitant]
     Indication: PRODUCT USED FOR UNKNOWN INDICATION
     Dosage: 1 PILL ONCE DAILY
     Route: 048
     Dates: start: 20090824, end: 20100407
  17. CALCIUM [Concomitant]
     Dosage: 3.5 PILLS, ONCE DAILY
     Route: 048
     Dates: end: 20100407
  18. FISH OIL [Concomitant]
     Indication: PRODUCT USED FOR UNKNOWN INDICATION
     Route: 048
     Dates: end: 20100407
  19. DECLYCERIZED LICORICE [Concomitant]
     Indication: GASTROOESOPHAGEAL REFLUX PROPHYLAXIS
     Dosage: 1 PILL AS REQUIRED
     Route: 048
     Dates: start: 20100301, end: 20100322
  20. TERBUTALINE [Concomitant]
     Indication: PREMATURE LABOUR
     Dosage: 2 SHOTS ONCE DAILY
     Route: 050
     Dates: start: 20100304, end: 20100304
  21. VITAMIN D [Concomitant]
     Indication: PRODUCT USED FOR UNKNOWN INDICATION
     Route: 048
     Dates: start: 20090722, end: 20090821
  22. PROBIOTICS NOS [Concomitant]
     Dosage: 2 PILLSONCE DAILY
     Route: 048
     Dates: start: 20091201, end: 20100407
  23. EVENING PRIMROSE OIL [Concomitant]
     Indication: PRODUCT USED FOR UNKNOWN INDICATION
     Route: 048
     Dates: start: 20090722, end: 20090821
  24. PENTASA [Concomitant]
     Indication: CROHN'S DISEASE
     Route: 048
     Dates: start: 20091120, end: 20100322
  25. PREDNISONE [Concomitant]
     Route: 048
     Dates: start: 20100401, end: 20100407
  26. ROLAIDS [Concomitant]
     Indication: DYSPEPSIA
     Dosage: 3.5 PILLS AS REQUIRED (NEW FORM 1997)
     Route: 048
     Dates: start: 20090922, end: 20091215
  27. VITAMIN D [Concomitant]
     Route: 048
     Dates: end: 20100407
  28. PROBIOTICS NOS [Concomitant]
     Indication: PRODUCT USED FOR UNKNOWN INDICATION
     Route: 048
     Dates: start: 20090722, end: 20090821
  29. TYLENOL [Concomitant]
     Indication: ARTHRITIS
     Route: 048
     Dates: start: 20090722, end: 20100407
  30. CLARITIN [Concomitant]
     Indication: HYPERSENSITIVITY
     Dosage: 1 PILL AS REQUIRED
     Route: 048
     Dates: start: 20090821, end: 20090915
  31. PROCARDIA [Concomitant]
     Indication: PROPHYLAXIS
  32. HUMIRA [Suspect]
     Indication: CROHN'S DISEASE
     Dates: start: 20090722, end: 20091205
  33. HUMIRA [Suspect]
     Indication: JUVENILE ARTHRITIS
  34. MULTI-VITAMINS [Concomitant]
     Indication: PRODUCT USED FOR UNKNOWN INDICATION
     Dosage: 1 PILL ONCE DAILY
     Route: 048
     Dates: start: 20090722, end: 20090821
  35. SUDAFED 12 HOUR [Concomitant]
     Indication: HYPERSENSITIVITY
     Route: 048
     Dates: start: 20090803, end: 20090810
  36. MAGNESIUM [Concomitant]
     Indication: PRODUCT USED FOR UNKNOWN INDICATION
     Route: 048
     Dates: end: 20100407
  37. H1N1 2009 INFLUENZA VACCINE [Concomitant]
     Indication: H1N1 INFLUENZA

REACTIONS (14)
  - SYSTEMIC INFLAMMATORY RESPONSE SYNDROME [None]
  - GASTROOESOPHAGEAL REFLUX DISEASE [None]
  - DEHYDRATION [None]
  - DYSPEPSIA [None]
  - DEMYELINATION [None]
  - H1N1 INFLUENZA [None]
  - LEUKOPENIA [None]
  - PREMATURE LABOUR [None]
  - AUTOIMMUNE DISORDER [None]
  - PANCYTOPENIA [None]
  - PYREXIA [None]
  - PARAESTHESIA [None]
  - CROHN'S DISEASE [None]
  - THROMBOCYTOPENIA [None]
